FAERS Safety Report 5802602-4 (Version None)
Quarter: 2008Q2

REPORT INFORMATION
  Report Type: 
  Country: None (occurrence: None)
  Receive Date: 20080626
  Receipt Date: 20080403
  Transmission Date: 20081010
  Serious: Yes (Hospitalization)
  Sender: FDA-Public Use
  Company Number: US-CVT-080022

PATIENT
  Age: 74 Year
  Sex: Male

DRUGS (12)
  1. RANEXA [Suspect]
     Indication: ANGINA PECTORIS
     Dosage: 1000 MG, BID, ORAL
     Route: 048
     Dates: start: 20080331, end: 20080403
  2. EPTIFIBATIDE(EPTIFIBATIDE) [Suspect]
     Dates: start: 20080324, end: 20080326
  3. LASIX [Concomitant]
  4. ASPIRIN [Concomitant]
  5. PLAVIX [Concomitant]
  6. COLACE (DOCUSATE SODIUM) [Concomitant]
  7. FENTANYL /00174601/ (FENTANYL) [Concomitant]
  8. METOPROLOL /00376901/ (METOPROLOL) [Concomitant]
  9. NITROGLYCERIN (GLYCERYL TRINTRATE) [Concomitant]
  10. ZOCOR CARDIO ASS (ACETYLSALICYLIC ACID) [Concomitant]
  11. NORVASC /00972401/ (AMLODIPINE) [Concomitant]
  12. PRILOSEC [Concomitant]

REACTIONS (1)
  - HAEMATURIA [None]
